FAERS Safety Report 20933802 (Version 2)
Quarter: 2022Q2

REPORT INFORMATION
  Report Type: Spontaneous
  Country: JP (occurrence: JP)
  Receive Date: 20220608
  Receipt Date: 20220630
  Transmission Date: 20220721
  Serious: Yes (Hospitalization)
  Sender: FDA-Public Use
  Company Number: JP-Eisai Medical Research-EC-2022-116557

PATIENT
  Age: 75 Year
  Sex: Female

DRUGS (7)
  1. LENVIMA [Suspect]
     Active Substance: LENVATINIB
     Indication: Endometrial cancer recurrent
     Dosage: DOSE AND FREQUENCY UNKNOWN
     Route: 048
     Dates: start: 20220328, end: 20220411
  2. LENVIMA [Suspect]
     Active Substance: LENVATINIB
     Dosage: DOSE AND FREQUENCY UNKNOWN (REDUCED DOSE)
     Route: 048
     Dates: start: 20220416, end: 202205
  3. KEYTRUDA [Suspect]
     Active Substance: PEMBROLIZUMAB
     Indication: Endometrial cancer recurrent
     Route: 041
     Dates: start: 20220328, end: 20220416
  4. KEYTRUDA [Suspect]
     Active Substance: PEMBROLIZUMAB
     Route: 041
     Dates: start: 20220516, end: 202205
  5. NIFEDIPINE [Concomitant]
     Active Substance: NIFEDIPINE
     Indication: Hypertension
     Dosage: DOSE AND FREQUENCY UNKNOWN
     Route: 065
     Dates: start: 202203
  6. ENTRESTO [Concomitant]
     Active Substance: SACUBITRIL\VALSARTAN
     Indication: Hypertension
     Dosage: DOSE AND FREQUENCY UNKNOWN
     Route: 065
     Dates: start: 202204
  7. URSO [Concomitant]
     Active Substance: URSODIOL
     Indication: Hepatic function abnormal
     Dosage: DOSE AND FREQUENCY UNKNOWN
     Route: 065
     Dates: start: 202204

REACTIONS (1)
  - Diarrhoea [Unknown]

NARRATIVE: CASE EVENT DATE: 20220501
